FAERS Safety Report 6249509-9 (Version None)
Quarter: 2009Q2

REPORT INFORMATION
  Report Type: 
  Country: None (occurrence: None)
  Receive Date: 20090629
  Receipt Date: 20090618
  Transmission Date: 20091009
  Serious: Yes (Other)
  Sender: FDA-Public Use
  Company Number: B0579730A

PATIENT
  Sex: Female

DRUGS (5)
  1. PAROXETINE HCL [Suspect]
     Indication: DRUG USE FOR UNKNOWN INDICATION
     Route: 048
     Dates: start: 19970115
  2. MAGNESIUM SULFATE [Concomitant]
  3. PROZAC [Concomitant]
     Route: 065
  4. PROPRANOLOL HYDROCHLORIDE [Concomitant]
     Route: 065
  5. DIAZEPAM [Concomitant]
     Route: 065

REACTIONS (10)
  - ANXIETY [None]
  - BACK PAIN [None]
  - CONVULSION [None]
  - DIZZINESS [None]
  - HYPERACUSIS [None]
  - MALAISE [None]
  - PANIC ATTACK [None]
  - PARAESTHESIA [None]
  - PHOTOPHOBIA [None]
  - SOCIAL PHOBIA [None]
